FAERS Safety Report 5470325-X (Version None)
Quarter: 2007Q3

REPORT INFORMATION
  Report Type: 
  Country: None (occurrence: None)
  Receive Date: 20070925
  Receipt Date: 20070910
  Transmission Date: 20080115
  Serious: Yes (Other)
  Sender: FDA-Public Use
  Company Number: 17487

PATIENT
  Sex: Female

DRUGS (4)
  1. PAMIDRONATE DISODIUM [Suspect]
     Indication: METASTASES TO BONE
     Dosage: 60 MG FREQ IV
     Route: 042
     Dates: start: 20010702, end: 20020701
  2. PAMIDRONATE DISODIUM [Suspect]
     Indication: METASTASES TO BONE
     Dates: start: 20070316
  3. ZOMETA [Suspect]
     Indication: METASTASES TO BONE
     Dosage: 4 MG IV
     Route: 042
     Dates: start: 20040719, end: 20051128
  4. ZOMETA [Suspect]
     Indication: METASTASES TO BONE
     Dates: start: 20060130, end: 20060804

REACTIONS (8)
  - BREAST CANCER [None]
  - GENERAL PHYSICAL HEALTH DETERIORATION [None]
  - INFECTION [None]
  - MALIGNANT NEOPLASM PROGRESSION [None]
  - METASTASES TO BONE [None]
  - MULTIMORBIDITY [None]
  - NEURALGIA [None]
  - OSTEONECROSIS [None]
